FAERS Safety Report 24848102 (Version 1)
Quarter: 2025Q1

REPORT INFORMATION
  Report Type: Report from Study
  Country: US (occurrence: US)
  Receive Date: 20250116
  Receipt Date: 20250116
  Transmission Date: 20250409
  Serious: Yes (Other)
  Sender: ALEXION PHARMACEUTICALS
  Company Number: US-AstraZeneca-CH-00781372A

PATIENT

DRUGS (4)
  1. OLAPARIB [Suspect]
     Active Substance: OLAPARIB
     Indication: Malignant peritoneal neoplasm
  2. OLAPARIB [Suspect]
     Active Substance: OLAPARIB
     Route: 048
  3. OLAPARIB [Suspect]
     Active Substance: OLAPARIB
  4. OLAPARIB [Suspect]
     Active Substance: OLAPARIB
     Route: 048

REACTIONS (3)
  - Renal impairment [Recovering/Resolving]
  - Renal failure [Unknown]
  - Blood creatinine abnormal [Unknown]
